FAERS Safety Report 5763778-0 (Version None)
Quarter: 2008Q2

REPORT INFORMATION
  Report Type: 
  Country: None (occurrence: None)
  Receive Date: 20080604
  Receipt Date: 20080604
  Transmission Date: 20081010
  Serious: Yes (Hospitalization)
  Sender: FDA-Public Use
  Company Number: None

PATIENT
  Sex: Female
  Weight: 74.5 kg

DRUGS (13)
  1. CYCLOPHOSPHAMIDE [Suspect]
     Dosage: 819 MG
  2. DOXIL [Suspect]
     Dosage: 56 MG
  3. NEULASTA [Suspect]
     Dosage: 6 MG
  4. PREDNISONE TAB [Suspect]
     Dosage: 350 MG
  5. RITUXIMAB (MOAB C2B8 ANTI CD20, CHIMERIC) [Suspect]
     Dosage: 701 MG
  6. VINCRISTINE SULFATE [Suspect]
     Dosage: 2 MG
  7. CARVEDILOL [Concomitant]
  8. DAPTOMYCIN [Concomitant]
  9. DIOVAN [Concomitant]
  10. DYAZIDE [Concomitant]
  11. SULFASALAZINE [Concomitant]
  12. ZOLOFT [Concomitant]
  13. ZYRTEC [Concomitant]

REACTIONS (4)
  - CATHETER RELATED INFECTION [None]
  - CELLULITIS [None]
  - STAPHYLOCOCCAL INFECTION [None]
  - THROMBOPHLEBITIS [None]
